FAERS Safety Report 7624115-X (Version None)
Quarter: 2011Q3

REPORT INFORMATION
  Report Type: 
  Country: None (occurrence: None)
  Receive Date: 20110720
  Receipt Date: 20110715
  Transmission Date: 20111222
  Serious: Yes (Hospitalization)
  Sender: FDA-Public Use
  Company Number: GB-PFIZER INC-2011160518

PATIENT
  Age: 62 Year
  Sex: Female

DRUGS (1)
  1. VARENICLINE TARTRATE [Suspect]

REACTIONS (2)
  - LOWER RESPIRATORY TRACT INFECTION [None]
  - BLOOD GLUCOSE INCREASED [None]
